FAERS Safety Report 8803949 (Version 1)
Quarter: 2012Q4

REPORT INFORMATION
  Report Type: 
  Country: US (occurrence: US)
  Receive Date: 20120924
  Receipt Date: 20120924
  Transmission Date: 20130627
  Serious: No
  Sender: FDA-Public Use
  Company Number: US-PFIZER INC-2012235117

PATIENT
  Age: 58 Year
  Sex: Male
  Weight: 81.63 kg

DRUGS (2)
  1. CADUET [Suspect]
     Indication: BLOOD PRESSURE ABNORMAL
     Dosage: [amlodipine besylate 05]/[atorvastatin calcium 40mg], daily
     Route: 048
     Dates: end: 201209
  2. CADUET [Suspect]
     Indication: BLOOD CHOLESTEROL ABNORMAL

REACTIONS (2)
  - Headache [Recovered/Resolved]
  - Dizziness [Recovered/Resolved]
